FAERS Safety Report 23544170 (Version 1)
Quarter: 2024Q1

REPORT INFORMATION
  Report Type: Spontaneous
  Country: US (occurrence: None)
  Receive Date: 20240216
  Receipt Date: 20240216
  Transmission Date: 20240409
  Serious: Yes (Death)
  Sender: FDA-Public Use
  Company Number: None

PATIENT
  Age: 85 Year
  Sex: Male
  Weight: 63.8 kg

DRUGS (1)
  1. RIVAROXABAN [Suspect]
     Active Substance: RIVAROXABAN
     Indication: Atrial fibrillation
     Dosage: FREQUENCY : DAILY;?
     Route: 048
     Dates: start: 20210204, end: 20231203

REACTIONS (12)
  - Gastrointestinal haemorrhage [None]
  - Gingival bleeding [None]
  - Shock haemorrhagic [None]
  - Pulmonary congestion [None]
  - Acute kidney injury [None]
  - Metabolic acidosis [None]
  - Dialysis [None]
  - Ventricular tachycardia [None]
  - Hypoxia [None]
  - Pneumonia [None]
  - Haemoglobin decreased [None]
  - International normalised ratio increased [None]

NARRATIVE: CASE EVENT DATE: 20231203
